FAERS Safety Report 5595009-9 (Version None)
Quarter: 2008Q1

REPORT INFORMATION
  Report Type: 
  Country: None (occurrence: None)
  Receive Date: 20080117
  Receipt Date: 20080111
  Transmission Date: 20080703
  Serious: Yes (Other)
  Sender: FDA-Public Use
  Company Number: PHEH2008US00737

PATIENT

DRUGS (5)
  1. FLEXERIL [Suspect]
     Route: 064
  2. PERCOCET [Suspect]
     Route: 064
  3. DIOVAN HCT [Suspect]
     Route: 064
  4. ZOLOFT [Suspect]
     Dosage: UNK, UNK
     Route: 064
  5. MOTRIN IB [Suspect]
     Dosage: UNK, UNK
     Route: 064

REACTIONS (3)
  - CARDIAC MONITORING [None]
  - DRUG EXPOSURE DURING PREGNANCY [None]
  - TRISOMY 21 [None]
